FAERS Safety Report 5940853-9 (Version None)
Quarter: 2008Q4

REPORT INFORMATION
  Report Type: 
  Country: None (occurrence: None)
  Receive Date: 20081104
  Receipt Date: 20081024
  Transmission Date: 20090506
  Serious: Yes (Hospitalization)
  Sender: FDA-Public Use
  Company Number: US-BAXTER-2008BH007475

PATIENT
  Age: 47 Year
  Sex: Female
  Weight: 115 kg

DRUGS (7)
  1. CYCLOPHOSPHAMIDE [Suspect]
     Indication: BREAST CANCER
     Route: 042
     Dates: start: 20070214, end: 20070328
  2. TAXOL [Suspect]
     Indication: BREAST CANCER
     Route: 042
     Dates: start: 20070411, end: 20070613
  3. EPIRUBICIN [Suspect]
     Indication: BREAST CANCER
     Route: 042
     Dates: start: 20070214, end: 20070328
  4. XELODA [Suspect]
     Indication: BREAST CANCER
     Dosage: DOSE UNIT:GRAMS PER METERS SQUARED
     Route: 048
     Dates: start: 20070411, end: 20070626
  5. TAMOXIFEN [Concomitant]
     Route: 048
     Dates: start: 20070626
  6. TRIPTORELIN [Concomitant]
     Route: 030
     Dates: start: 20070626
  7. IBANDRONATE SODIUM [Concomitant]
     Route: 048
     Dates: start: 20070614

REACTIONS (1)
  - ERYSIPELAS [None]
